FAERS Safety Report 8773270 (Version 1)
Quarter: 2012Q4

REPORT INFORMATION
  Report Type: Report from Study
  Country: DE (occurrence: DE)
  Receive Date: 20120907
  Receipt Date: 20120907
  Transmission Date: 20130627
  Serious: Yes (Hospitalization, Other)
  Sender: FDA-Public Use
  Company Number: DE-ROCHE-1108637

PATIENT
  Sex: Male
  Weight: 71.7 kg

DRUGS (5)
  1. AVASTIN [Suspect]
     Indication: NON-SMALL CELL LUNG CANCER
     Route: 042
     Dates: start: 20120523, end: 20120808
  2. PACLITAXEL [Concomitant]
     Indication: NON-SMALL CELL LUNG CANCER
     Route: 042
     Dates: start: 20120523, end: 20120808
  3. CARBOPLATIN [Concomitant]
     Indication: NON-SMALL CELL LUNG CANCER
     Route: 042
     Dates: start: 20120523, end: 20120808
  4. FENTANYL TRANSDERMAL [Concomitant]
     Indication: PAIN
     Route: 062
     Dates: start: 20120820
  5. NOVAMINSULFON [Concomitant]
     Route: 048
     Dates: start: 20120820

REACTIONS (2)
  - Dyspnoea [Not Recovered/Not Resolved]
  - Malignant neoplasm progression [Recovered/Resolved with Sequelae]
